FAERS Safety Report 6411234-9 (Version None)
Quarter: 2009Q4

REPORT INFORMATION
  Report Type: 
  Country: None (occurrence: None)
  Receive Date: 20091020
  Receipt Date: 20091013
  Transmission Date: 20100525
  Serious: Yes (Life-Threatening)
  Sender: FDA-Public Use
  Company Number: TCI2009A03950

PATIENT
  Age: 57 Year
  Sex: Male

DRUGS (2)
  1. TAKEPRON OD [Suspect]
     Indication: GASTRIC ULCER
     Dosage: 15 MG (15 MG,1 IN 1 D)PER ORAL
     Route: 048
     Dates: start: 20090930, end: 20090930
  2. MUCOSTA (REBAMIPIDE) [Concomitant]

REACTIONS (2)
  - ANAPHYLACTIC SHOCK [None]
  - TREMOR [None]
